FAERS Safety Report 16080289 (Version 1)
Quarter: 2019Q1

REPORT INFORMATION
  Report Type: Spontaneous
  Country: US (occurrence: US)
  Receive Date: 20190315
  Receipt Date: 20190315
  Transmission Date: 20190418
  Serious: No
  Sender: FDA-Public Use
  Company Number: US-PTC THERAPEUTICS, INC.-US-2018PTC001101

PATIENT

DRUGS (3)
  1. EMFLAZA [Suspect]
     Active Substance: DEFLAZACORT
     Dosage: 15 MG, QOD
     Route: 048
     Dates: start: 20181019
  2. EMFLAZA [Suspect]
     Active Substance: DEFLAZACORT
     Dosage: 15 MG, UNK
     Route: 048
     Dates: start: 20181010
  3. EMFLAZA [Suspect]
     Active Substance: DEFLAZACORT
     Indication: DUCHENNE MUSCULAR DYSTROPHY
     Dosage: 30 MG, QD
     Route: 048
     Dates: start: 20180911

REACTIONS (7)
  - Abnormal behaviour [Not Recovered/Not Resolved]
  - Nausea [Unknown]
  - Agitation [Unknown]
  - Off label use [Unknown]
  - Pollakiuria [Unknown]
  - Emotional disorder [Not Recovered/Not Resolved]
  - Irritability [Not Recovered/Not Resolved]

NARRATIVE: CASE EVENT DATE: 20180911
